FAERS Safety Report 4639661-0 (Version None)
Quarter: 2005Q2

REPORT INFORMATION
  Report Type: 
  Country: None (occurrence: None)
  Receive Date: 20050328
  Receipt Date: 20041215
  Transmission Date: 20051028
  Serious: No
  Sender: FDA-Public Use
  Company Number: USA041286266

PATIENT
  Sex: Female

DRUGS (3)
  1. STRATTERA [Suspect]
     Indication: ATTENTION DEFICIT/HYPERACTIVITY DISORDER
     Dosage: 40 MG DAY
     Dates: start: 20041206, end: 20041211
  2. CONCERTA [Concomitant]
  3. PROTONIX [Concomitant]

REACTIONS (8)
  - ABDOMINAL PAIN [None]
  - ASTHENIA [None]
  - DIZZINESS [None]
  - FEELING ABNORMAL [None]
  - FEELING JITTERY [None]
  - FLAT AFFECT [None]
  - HEADACHE [None]
  - NAUSEA [None]
